FAERS Safety Report 8799609 (Version 1)
Quarter: 2012Q4

REPORT INFORMATION
  Report Type: Spontaneous
  Country: US (occurrence: None)
  Receive Date: 20120918
  Receipt Date: 20120918
  Transmission Date: 20130627
  Serious: Yes (Hospitalization)
  Sender: FDA-Public Use
  Company Number: None

PATIENT
  Age: 49 Year
  Sex: Female
  Weight: 80.74 kg

DRUGS (3)
  1. RIBASPHERE [Suspect]
     Indication: HEPATITIS C
     Route: 048
  2. PEG-INTRON REDIPEN [Concomitant]
  3. VICTRELIS [Concomitant]

REACTIONS (4)
  - Loss of consciousness [None]
  - White blood cell count decreased [None]
  - Red blood cell count decreased [None]
  - Pancreatitis [None]
